FAERS Safety Report 6290922-1 (Version None)
Quarter: 2009Q3

REPORT INFORMATION
  Report Type: 
  Country: None (occurrence: None)
  Receive Date: 20090730
  Receipt Date: 20090728
  Transmission Date: 20100115
  Serious: Yes (Death, Other)
  Sender: FDA-Public Use
  Company Number: PHHY2009BR31351

PATIENT
  Sex: Male

DRUGS (5)
  1. EXELON [Suspect]
     Indication: DEMENTIA ALZHEIMER'S TYPE
     Dosage: 1.5 MG
     Route: 048
  2. EXELON [Suspect]
     Dosage: 2 CAPSULES (6 MG) DAILY
     Route: 048
  3. METFORMIN HCL [Concomitant]
     Indication: DIABETES MELLITUS
  4. AMARYL [Concomitant]
     Indication: DIABETES MELLITUS
  5. PRAVACHOL [Concomitant]

REACTIONS (6)
  - BLOOD GLUCOSE FLUCTUATION [None]
  - DYSPNOEA [None]
  - GAIT DISTURBANCE [None]
  - IRON DEFICIENCY [None]
  - LACK OF SPONTANEOUS SPEECH [None]
  - RENAL FAILURE [None]
